FAERS Safety Report 5247384-2 (Version None)
Quarter: 2007Q1

REPORT INFORMATION
  Report Type: 
  Country: None (occurrence: None)
  Receive Date: 20070227
  Receipt Date: 20070215
  Transmission Date: 20070707
  Serious: Yes (Other)
  Sender: FDA-Public Use
  Company Number: AU-JNJFOC-20061100738

PATIENT
  Sex: Male

DRUGS (3)
  1. RISPERDAL [Suspect]
     Indication: DEPRESSION
     Route: 048
  2. RISPERDAL [Suspect]
     Indication: OBSESSIVE-COMPULSIVE DISORDER
     Route: 048
  3. ZOLOFT [Concomitant]

REACTIONS (1)
  - CEREBROSPINAL FLUID RETENTION [None]
